FAERS Safety Report 7313530-X (Version None)
Quarter: 2011Q1

REPORT INFORMATION
  Report Type: 
  Country: None (occurrence: None)
  Receive Date: 20110225
  Receipt Date: 20100618
  Transmission Date: 20110831
  Serious: Yes (Hospitalization, Other)
  Sender: FDA-Public Use
  Company Number: US-BAYER-201011775NA

PATIENT
  Sex: Female
  Weight: 67.12 kg

DRUGS (5)
  1. YASMIN [Suspect]
     Indication: MENSTRUATION IRREGULAR
  2. YASMIN [Suspect]
     Indication: ABDOMINAL DISTENSION
  3. OCELLA [Suspect]
     Indication: CONTRACEPTION
  4. MICARDIS HCT [Concomitant]
  5. YASMIN [Suspect]
     Indication: CONTRACEPTION
     Dosage: UNK
     Route: 048
     Dates: start: 20070101

REACTIONS (9)
  - DERMATOLOGIC EXAMINATION ABNORMAL [None]
  - ARRHYTHMIA [None]
  - GALLBLADDER CHOLESTEROLOSIS [None]
  - CHEST PAIN [None]
  - ABDOMINAL PAIN UPPER [None]
  - CHOLECYSTITIS CHRONIC [None]
  - FEELING ABNORMAL [None]
  - BLOOD POTASSIUM INCREASED [None]
  - ABDOMINAL PAIN [None]
